FAERS Safety Report 19896254 (Version 2)
Quarter: 2022Q3

REPORT INFORMATION
  Report Type: Spontaneous
  Country: AU (occurrence: AU)
  Receive Date: 20210929
  Receipt Date: 20220720
  Transmission Date: 20221027
  Serious: Yes (Other)
  Sender: FDA-Public Use
  Company Number: AU-PFIZER INC-202101240558

PATIENT
  Age: 39 Year
  Sex: Male

DRUGS (5)
  1. DESVENLAFAXINE SUCCINATE [Suspect]
     Active Substance: DESVENLAFAXINE SUCCINATE
     Indication: Depression
     Dosage: UNK, DAILY (100-150 MG DAILY)
  2. TRAMADOL [Suspect]
     Active Substance: TRAMADOL
     Indication: Pain
     Dosage: 100 MG, 2X/DAY (SR)
     Route: 048
  3. TRAMADOL [Suspect]
     Active Substance: TRAMADOL
     Dosage: 50 MG (ONE TO TWO TABLETS PRN UP TO THREE TIMES DAILY)
  4. TRAMADOL [Suspect]
     Active Substance: TRAMADOL
     Dosage: 100 MG (UP TO THREE 100 MG SLOW RELEASE TABLETS)
  5. TRAMADOL [Suspect]
     Active Substance: TRAMADOL
     Dosage: 50 MG, DAILY (UP TO EIGHT OF THE 50 MG IMMEDIATE RELEASE TABLETS EVERY DAY)

REACTIONS (5)
  - Intentional product use issue [Unknown]
  - Hallucination, auditory [Recovered/Resolved]
  - Persecutory delusion [Recovered/Resolved]
  - Mental disorder [Recovered/Resolved]
  - Psychotic disorder [Recovered/Resolved]
